FAERS Safety Report 10331180 (Version 2)
Quarter: 2014Q3

REPORT INFORMATION
  Report Type: Spontaneous
  Country: IN (occurrence: IN)
  Receive Date: 20140722
  Receipt Date: 20140722
  Transmission Date: 20150326
  Serious: Yes (Other)
  Sender: FDA-Public Use
  Company Number: IN-BEH-2014043858

PATIENT

DRUGS (1)
  1. RH (D) IMMUNOPROPHYLAXIS [Suspect]
     Active Substance: HUMAN RHO(D) IMMUNE GLOBULIN

REACTIONS (7)
  - Premature baby [Recovered/Resolved]
  - Jaundice [Recovered/Resolved]
  - Coombs direct test positive [Recovered/Resolved]
  - Maternal drugs affecting foetus [None]
  - Jaundice neonatal [None]
  - Caesarean section [None]
  - Anaemia [Recovered/Resolved]
